FAERS Safety Report 21403025 (Version 1)
Quarter: 2022Q3

REPORT INFORMATION
  Report Type: Spontaneous
  Country: US (occurrence: None)
  Receive Date: 20220923
  Receipt Date: 20220923
  Transmission Date: 20221027
  Serious: Yes (Disabling)
  Sender: FDA-Public Use
  Company Number: None

PATIENT
  Age: 93 Year
  Weight: 57.15 kg

DRUGS (5)
  1. MUPIROCIN [Suspect]
     Active Substance: MUPIROCIN
  2. TRIAMCINOLONE [Suspect]
     Active Substance: TRIAMCINOLONE
  3. CLINDAMYCIN [Suspect]
     Active Substance: CLINDAMYCIN
  4. POTASSIUM [Concomitant]
     Active Substance: POTASSIUM
  5. CYANOCOBALAMIN [Concomitant]
     Active Substance: CYANOCOBALAMIN

REACTIONS (6)
  - Rash [None]
  - Erythema [None]
  - Arthralgia [None]
  - Muscular weakness [None]
  - Flank pain [None]
  - Blister [None]

NARRATIVE: CASE EVENT DATE: 20220104
